FAERS Safety Report 8803606 (Version 2)
Quarter: 2012Q4

REPORT INFORMATION
  Report Type: 
  Country: CA (occurrence: CA)
  Receive Date: 20120924
  Receipt Date: 20121107
  Transmission Date: 20130627
  Serious: Yes (Other)
  Sender: FDA-Public Use
  Company Number: PHHY2012CA082419

PATIENT
  Age: 60 Year
  Sex: Female

DRUGS (1)
  1. TEGRETOL CR [Suspect]
     Dosage: 400 mg, UNK
     Route: 048

REACTIONS (2)
  - Convulsion [Unknown]
  - Movement disorder [Unknown]
